FAERS Safety Report 16505421 (Version 1)
Quarter: 2019Q3

REPORT INFORMATION
  Report Type: Spontaneous
  Country: US (occurrence: US)
  Receive Date: 20190701
  Receipt Date: 20190701
  Transmission Date: 20191004
  Serious: No
  Sender: FDA-Public Use
  Company Number: US-SA-2019SA168479

PATIENT
  Age: 79 Year
  Sex: Male

DRUGS (1)
  1. TOUJEO [Suspect]
     Active Substance: INSULIN GLARGINE
     Dosage: 50UNITS IN AM AND 50UNITS PM
     Route: 065
     Dates: start: 201709

REACTIONS (1)
  - Inappropriate schedule of product administration [Unknown]
